FAERS Safety Report 24907079 (Version 1)
Quarter: 2025Q1

REPORT INFORMATION
  Report Type: Spontaneous
  Country: US (occurrence: US)
  Receive Date: 20250130
  Receipt Date: 20250130
  Transmission Date: 20250408
  Serious: No
  Sender: SANOFI AVENTIS
  Company Number: US-SA-2025SA027091

PATIENT
  Age: 60 Year
  Sex: Female

DRUGS (2)
  1. DUPIXENT [Suspect]
     Active Substance: DUPILUMAB
     Indication: Neurodermatitis
     Dosage: 300 MG, QOW
     Route: 058
  2. RIBOFLAVIN [Concomitant]
     Active Substance: RIBOFLAVIN

REACTIONS (4)
  - Nausea [Unknown]
  - Pruritus [Unknown]
  - Dizziness [Unknown]
  - Arthralgia [Unknown]
